FAERS Safety Report 7095553-1 (Version None)
Quarter: 2010Q4

REPORT INFORMATION
  Report Type: 
  Country: None (occurrence: None)
  Receive Date: 20101111
  Receipt Date: 20101027
  Transmission Date: 20110411
  Serious: Yes (Other)
  Sender: FDA-Public Use
  Company Number: US-RB-014785-10

PATIENT
  Age: 49 Year
  Sex: Female

DRUGS (25)
  1. MUCINEX D [Suspect]
     Indication: RHINORRHOEA
     Route: 048
  2. MUCINEX [Suspect]
  3. GLIPIZIDE [Concomitant]
  4. DIOVAN [Concomitant]
     Indication: BLOOD PRESSURE
  5. HYDROCHLOROTHIAZIDE [Concomitant]
  6. SIMVASTATIN [Concomitant]
     Indication: BLOOD CHOLESTEROL
  7. PREVACID [Concomitant]
  8. SINGULAIR [Concomitant]
  9. XYLAL [Concomitant]
     Indication: ASTHMA
  10. XYLAL [Concomitant]
  11. IPRATROTRUM [Concomitant]
     Route: 045
  12. PATANAS [Concomitant]
     Route: 045
  13. ASTOPRO [Concomitant]
     Route: 045
  14. OMARIS [Concomitant]
  15. MUPIRCON [Concomitant]
  16. BENADRYL [Concomitant]
     Dosage: TAKES TWO AT NIGHT.
  17. LOTRINEX [Concomitant]
     Indication: IRRITABLE BOWEL SYNDROME
  18. ORTHOCYCLINE [Concomitant]
  19. ACIDOPHILUS [Concomitant]
     Dosage: PRODUCT TAKEN AFTER EACH MEAL.
  20. MAGNESIUM [Concomitant]
  21. VITAMIN D [Concomitant]
  22. CALCIUM [Concomitant]
  23. SUPER B COMPLEX [Concomitant]
  24. MULTI-VITAMINS [Concomitant]
  25. FINASIA [Concomitant]

REACTIONS (4)
  - BLOOD PRESSURE INCREASED [None]
  - HEART RATE INCREASED [None]
  - INCORRECT DRUG ADMINISTRATION DURATION [None]
  - TACHYCARDIA [None]
